FAERS Safety Report 21956026 (Version 1)
Quarter: 2023Q1

REPORT INFORMATION
  Report Type: Report from Study
  Country: CA (occurrence: CA)
  Receive Date: 20230206
  Receipt Date: 20230206
  Transmission Date: 20230418
  Serious: Yes (Other)
  Sender: FDA-Public Use
  Company Number: CA-CELLTRION INC.-2023CA000711

PATIENT

DRUGS (8)
  1. TRUXIMA [Suspect]
     Active Substance: RITUXIMAB-ABBS
     Indication: Rheumatoid arthritis
     Dosage: 1000 MILLIGRAM, Q2WEEKS  (TWO SETS ONCE EVERY 2 WEEKS)
     Route: 042
     Dates: start: 20210525
  2. TRUXIMA [Suspect]
     Active Substance: RITUXIMAB-ABBS
     Dosage: 1000 MILLIGRAM, Q2WEEKS (TWO SETS ONCE EVERY 2 WEEKS) (STRAT DATE: APR OR MAY 2022)
     Route: 042
     Dates: start: 2022
  3. HYDROXYCHLOROQUINE [Concomitant]
     Active Substance: HYDROXYCHLOROQUINE
  4. SULFASALAZINE [Concomitant]
     Active Substance: SULFASALAZINE
  5. PREDNISONE [Concomitant]
     Active Substance: PREDNISONE
  6. LEFLUNOMIDE [Concomitant]
     Active Substance: LEFLUNOMIDE
  7. APIXABAN [Concomitant]
     Active Substance: APIXABAN
  8. AMLODIPINE BESYLATE [Concomitant]
     Active Substance: AMLODIPINE BESYLATE

REACTIONS (4)
  - COVID-19 [Not Recovered/Not Resolved]
  - Bacteraemia [Unknown]
  - Malaise [Unknown]
  - Knee operation [Unknown]

NARRATIVE: CASE EVENT DATE: 20221001
